FAERS Safety Report 10248518 (Version 1)
Quarter: 2014Q2

REPORT INFORMATION
  Report Type: Spontaneous
  Country: US (occurrence: US)
  Receive Date: 20140620
  Receipt Date: 20140620
  Transmission Date: 20141212
  Serious: No
  Sender: FDA-Public Use
  Company Number: US-US-EMD SERONO, INC.-7298943

PATIENT
  Sex: 0

DRUGS (1)
  1. REBIF [Suspect]
     Indication: PRODUCT USED FOR UNKNOWN INDICATION
     Route: 058
     Dates: start: 201308, end: 20140401

REACTIONS (5)
  - Hemiparesis [Unknown]
  - Cognitive disorder [Unknown]
  - Feeling abnormal [Unknown]
  - Asthenia [Unknown]
  - Fatigue [Unknown]
